FAERS Safety Report 12288235 (Version 1)
Quarter: 2016Q2

REPORT INFORMATION
  Report Type: Spontaneous
  Country: US (occurrence: US)
  Receive Date: 20160420
  Receipt Date: 20160420
  Transmission Date: 20160815
  Serious: Yes (Hospitalization, Other)
  Sender: FDA-Public Use
  Company Number: ADR-2015-01444

PATIENT
  Age: 61 Year
  Sex: Male

DRUGS (1)
  1. BACLOFEN. [Suspect]
     Active Substance: BACLOFEN
     Dosage: 900.2 UG/DAY
     Route: 037

REACTIONS (4)
  - Blood pressure decreased [Unknown]
  - Pyrexia [Unknown]
  - Drug withdrawal syndrome [Unknown]
  - Infection [Unknown]
